FAERS Safety Report 8622911-3 (Version None)
Quarter: 2012Q3

REPORT INFORMATION
  Report Type: 
  Country: None (occurrence: None)
  Receive Date: 20120827
  Receipt Date: 20120820
  Transmission Date: 20120928
  Serious: Yes (Hospitalization, Other)
  Sender: FDA-Public Use
  Company Number: PHHY2012VE073175

PATIENT
  Sex: Male

DRUGS (5)
  1. ALDACTONE [Concomitant]
     Indication: DIURETIC THERAPY
     Dosage: 1 TABLET DAILY
     Route: 048
  2. PANTOPRAZOLE [Concomitant]
     Indication: GASTRIC DISORDER
     Dosage: 1 TABLET DAILY
     Route: 048
  3. PROGRAF [Concomitant]
     Indication: IMMUNOSUPPRESSION
     Dosage: UNK UKN, BID
     Route: 048
  4. CERTICAN [Suspect]
     Dosage: 0.75 MG, QD
     Route: 048
     Dates: start: 20120104, end: 20120701
  5. PREDNISONE TAB [Concomitant]
     Dosage: 1 TABLET DAILY
     Route: 048

REACTIONS (4)
  - BILIARY TRACT DISORDER [None]
  - IMPAIRED HEALING [None]
  - INTESTINAL OBSTRUCTION [None]
  - ABASIA [None]
